FAERS Safety Report 7631585-X (Version None)
Quarter: 2011Q3

REPORT INFORMATION
  Report Type: 
  Country: None (occurrence: None)
  Receive Date: 20110715
  Receipt Date: 20110630
  Transmission Date: 20111222
  Serious: Yes (Other)
  Sender: FDA-Public Use
  Company Number: TPA2011A03662

PATIENT

DRUGS (1)
  1. ACTOS [Suspect]
     Indication: TYPE 2 DIABETES MELLITUS
     Dosage: 45 MG, 1 IN 1 D, PER ORAL/3 OR 6 YRS AGO
     Route: 048

REACTIONS (3)
  - BLADDER TRANSITIONAL CELL CARCINOMA [None]
  - ADRENAL CARCINOMA [None]
  - RENAL NEOPLASM [None]
